FAERS Safety Report 19828435 (Version 13)
Quarter: 2023Q2

REPORT INFORMATION
  Report Type: Spontaneous
  Country: GB (occurrence: GB)
  Receive Date: 20210914
  Receipt Date: 20230410
  Transmission Date: 20230721
  Serious: Yes (Death, Hospitalization, Other)
  Sender: FDA-Public Use
  Company Number: GB-ROCHE-2677215

PATIENT
  Age: 71 Year
  Sex: Female
  Weight: 51.2 kg

DRUGS (188)
  1. MORPHINE SULFATE [Suspect]
     Active Substance: MORPHINE SULFATE
     Indication: Prophylaxis
     Dosage: UNK
     Route: 065
     Dates: start: 20200825
  2. MORPHINE SULFATE [Suspect]
     Active Substance: MORPHINE SULFATE
     Indication: Pain
     Dosage: 0.5 DAILY
     Route: 065
     Dates: start: 20200731
  3. CIPROFLOXACIN [Suspect]
     Active Substance: CIPROFLOXACIN
     Indication: Prophylaxis
     Dosage: 0.5 DAILY
     Route: 065
     Dates: start: 20200827
  4. CIPROFLOXACIN [Suspect]
     Active Substance: CIPROFLOXACIN
     Dosage: 2 DOSAGE FORM, QD
     Dates: start: 20200827
  5. CIPROFLOXACIN [Suspect]
     Active Substance: CIPROFLOXACIN
     Dosage: UNK
  6. CYCLIZINE [Suspect]
     Active Substance: CYCLIZINE
     Indication: Vomiting
     Dosage: UNK (TIME INTERVAL)
     Route: 065
  7. CYCLIZINE [Suspect]
     Active Substance: CYCLIZINE
     Indication: Neutropenic sepsis
     Dosage: UNK, 0.25 DAY
     Route: 065
  8. CYCLIZINE [Suspect]
     Active Substance: CYCLIZINE
     Dosage: 0.25 UNK, DAILY
     Route: 065
  9. CYCLIZINE [Suspect]
     Active Substance: CYCLIZINE
     Dosage: 0.5 DAILY
     Route: 065
  10. CYCLIZINE [Suspect]
     Active Substance: CYCLIZINE
     Dosage: 0.5 DAILY
     Route: 065
  11. CYCLIZINE [Suspect]
     Active Substance: CYCLIZINE
     Dosage: UNK
     Route: 065
  12. CYCLIZINE [Suspect]
     Active Substance: CYCLIZINE
     Dosage: UNK
     Route: 065
  13. CYCLIZINE [Suspect]
     Active Substance: CYCLIZINE
     Dosage: UNK
     Route: 065
  14. CYCLIZINE [Suspect]
     Active Substance: CYCLIZINE
     Dosage: 0.5 DAILY
  15. CYCLIZINE [Suspect]
     Active Substance: CYCLIZINE
     Dosage: UNK
  16. CYCLIZINE [Suspect]
     Active Substance: CYCLIZINE
     Dosage: UNK
  17. CYCLIZINE [Suspect]
     Active Substance: CYCLIZINE
     Dosage: UNK
  18. CYCLIZINE [Suspect]
     Active Substance: CYCLIZINE
     Dosage: UNK
  19. CYCLIZINE [Suspect]
     Active Substance: CYCLIZINE
     Dosage: UNK, QID (0.25 DAY)
  20. CYCLIZINE [Suspect]
     Active Substance: CYCLIZINE
     Dosage: 4 MG, QD
  21. CYCLIZINE [Suspect]
     Active Substance: CYCLIZINE
     Dosage: UNK
  22. TIOTROPIUM [Suspect]
     Active Substance: TIOTROPIUM
     Indication: Chronic obstructive pulmonary disease
     Dosage: UNK
     Route: 065
  23. TIOTROPIUM [Suspect]
     Active Substance: TIOTROPIUM
     Indication: Chronic obstructive pulmonary disease
     Dosage: UNK, DAILY
     Route: 065
  24. TIOTROPIUM [Suspect]
     Active Substance: TIOTROPIUM
     Dosage: UNK, DAILY
     Route: 065
  25. TIOTROPIUM [Suspect]
     Active Substance: TIOTROPIUM
     Dosage: 1 DAILY
     Route: 065
  26. TIOTROPIUM [Suspect]
     Active Substance: TIOTROPIUM
     Dosage: 1 DAILY
     Route: 065
  27. TIOTROPIUM [Suspect]
     Active Substance: TIOTROPIUM
     Dosage: 1 DAILY
  28. TIOTROPIUM [Suspect]
     Active Substance: TIOTROPIUM
     Dosage: UNK
  29. TIOTROPIUM [Suspect]
     Active Substance: TIOTROPIUM
     Dosage: UNK, QD
  30. LINEZOLID [Suspect]
     Active Substance: LINEZOLID
     Indication: Neutropenic sepsis
     Dosage: UNK
     Route: 065
     Dates: start: 20200830
  31. CLOPIDOGREL [Suspect]
     Active Substance: CLOPIDOGREL BISULFATE
     Indication: Hypertension
     Dosage: UNK
     Route: 065
  32. CLOPIDOGREL [Suspect]
     Active Substance: CLOPIDOGREL BISULFATE
     Dosage: UNK, DAILY
     Route: 065
  33. CLOPIDOGREL [Suspect]
     Active Substance: CLOPIDOGREL BISULFATE
     Dosage: UNK, DAILY
     Route: 065
  34. CLOPIDOGREL [Suspect]
     Active Substance: CLOPIDOGREL BISULFATE
     Dosage: 1 DAILY
     Route: 065
  35. CLOPIDOGREL [Suspect]
     Active Substance: CLOPIDOGREL BISULFATE
     Dosage: 1 DAILY
     Route: 065
  36. CLOPIDOGREL [Suspect]
     Active Substance: CLOPIDOGREL BISULFATE
     Dosage: UNK
     Route: 065
  37. CLOPIDOGREL [Suspect]
     Active Substance: CLOPIDOGREL BISULFATE
     Dosage: UNK
     Route: 065
  38. CLOPIDOGREL [Suspect]
     Active Substance: CLOPIDOGREL BISULFATE
     Dosage: UNK
     Route: 065
  39. CLOPIDOGREL [Suspect]
     Active Substance: CLOPIDOGREL BISULFATE
     Dosage: 1 DAILY
  40. CLOPIDOGREL [Suspect]
     Active Substance: CLOPIDOGREL BISULFATE
     Dosage: UNK
  41. CLOPIDOGREL [Suspect]
     Active Substance: CLOPIDOGREL BISULFATE
     Dosage: UNK
  42. CLOPIDOGREL [Suspect]
     Active Substance: CLOPIDOGREL BISULFATE
     Dosage: UNK
  43. CLOPIDOGREL [Suspect]
     Active Substance: CLOPIDOGREL BISULFATE
     Dosage: 1 DOSAGE FORM, QD
  44. LANSOPRAZOLE [Suspect]
     Active Substance: LANSOPRAZOLE
     Indication: Prophylaxis
     Dosage: 1 DAILY
     Route: 065
     Dates: start: 20170101
  45. AMOXICILLIN [Suspect]
     Active Substance: AMOXICILLIN
     Indication: Product used for unknown indication
     Dosage: UNK UNK, QID
     Route: 065
     Dates: start: 20200810, end: 20200816
  46. AMOXICILLIN [Suspect]
     Active Substance: AMOXICILLIN
     Dosage: QW FOR UNKNOWN
     Route: 065
  47. AMOXICILLIN [Suspect]
     Active Substance: AMOXICILLIN
     Dosage: QD FOR UNKNOWN
     Route: 065
  48. AMLODIPINE [Suspect]
     Active Substance: AMLODIPINE BESYLATE
     Indication: Hypertension
     Dosage: UNK
     Route: 065
  49. AMLODIPINE [Suspect]
     Active Substance: AMLODIPINE BESYLATE
     Dosage: UNK, DAILY
     Route: 065
  50. AMLODIPINE [Suspect]
     Active Substance: AMLODIPINE BESYLATE
     Dosage: UNK, DAILY
     Route: 065
  51. AMLODIPINE [Suspect]
     Active Substance: AMLODIPINE BESYLATE
     Dosage: 1 DAILY
     Route: 065
  52. AMLODIPINE [Suspect]
     Active Substance: AMLODIPINE BESYLATE
     Dosage: 1 DAILY
     Route: 065
  53. AMLODIPINE [Suspect]
     Active Substance: AMLODIPINE BESYLATE
     Dosage: UNK
     Route: 065
  54. AMLODIPINE [Suspect]
     Active Substance: AMLODIPINE BESYLATE
     Dosage: UNK
     Route: 065
  55. AMLODIPINE [Suspect]
     Active Substance: AMLODIPINE BESYLATE
     Dosage: UNK
     Route: 065
  56. AMLODIPINE [Suspect]
     Active Substance: AMLODIPINE BESYLATE
     Dosage: UNK
     Route: 065
  57. AMLODIPINE [Suspect]
     Active Substance: AMLODIPINE BESYLATE
     Dosage: 1 DAILY
     Route: 065
  58. AMLODIPINE [Suspect]
     Active Substance: AMLODIPINE BESYLATE
     Dosage: UNK
     Route: 065
  59. AMLODIPINE [Suspect]
     Active Substance: AMLODIPINE BESYLATE
     Dosage: UNK
     Route: 065
  60. AMLODIPINE [Suspect]
     Active Substance: AMLODIPINE BESYLATE
     Dosage: UNK
     Route: 065
  61. AMLODIPINE [Suspect]
     Active Substance: AMLODIPINE BESYLATE
     Dosage: UNK
     Route: 065
  62. AMLODIPINE [Suspect]
     Active Substance: AMLODIPINE BESYLATE
     Dosage: UNK
     Route: 065
  63. AMLODIPINE [Suspect]
     Active Substance: AMLODIPINE BESYLATE
     Dosage: UNK UNK, QD
     Route: 065
  64. AMLODIPINE [Suspect]
     Active Substance: AMLODIPINE BESYLATE
     Dosage: 1 MG, QD
     Route: 065
  65. AMLODIPINE [Suspect]
     Active Substance: AMLODIPINE BESYLATE
     Dosage: UNK
     Route: 065
  66. AMLODIPINE [Suspect]
     Active Substance: AMLODIPINE BESYLATE
     Dosage: UNK
     Route: 065
  67. VORICONAZOLE [Suspect]
     Active Substance: VORICONAZOLE
     Indication: Neutropenic sepsis
     Dosage: 1 DAILY
     Route: 065
     Dates: start: 20200830
  68. VORICONAZOLE [Suspect]
     Active Substance: VORICONAZOLE
     Dosage: 1 DOSAGE FORM, QD
     Route: 065
     Dates: start: 20200830
  69. FORMOTEROL [Suspect]
     Active Substance: FORMOTEROL
     Indication: Hypertension
     Dosage: 0.5 MILLIGRAM
     Route: 065
     Dates: start: 20200301
  70. FORMOTEROL [Suspect]
     Active Substance: FORMOTEROL
     Dosage: 0.5 MG, 0.5 DAY
     Route: 065
     Dates: start: 20200301
  71. CARBOPLATIN [Suspect]
     Active Substance: CARBOPLATIN
     Indication: Non-small cell lung cancer
     Dosage: 450 MG, QD
     Route: 065
     Dates: start: 20200729
  72. CARBOPLATIN [Suspect]
     Active Substance: CARBOPLATIN
     Indication: Small cell lung cancer extensive stage
  73. CARBOPLATIN [Suspect]
     Active Substance: CARBOPLATIN
     Indication: Small cell lung cancer extensive stage
  74. BENZYDAMINE [Suspect]
     Active Substance: BENZYDAMINE
     Indication: Prophylaxis
     Dosage: UNK
     Route: 065
     Dates: start: 20200819
  75. MORPHINE SULFATE [Suspect]
     Active Substance: MORPHINE SULFATE
     Indication: Pain
     Dosage: 1 DAILY
     Route: 065
     Dates: start: 20200727
  76. MORPHINE SULFATE [Suspect]
     Active Substance: MORPHINE SULFATE
     Dosage: 1 MG, QD
     Dates: start: 20200727
  77. MORPHINE SULFATE [Suspect]
     Active Substance: MORPHINE SULFATE
     Dosage: UNK UNK, QD
     Dates: start: 20200825
  78. FLUCONAZOLE [Suspect]
     Active Substance: FLUCONAZOLE
     Indication: Candida infection
     Dosage: UNK
     Route: 065
  79. FLUCONAZOLE [Suspect]
     Active Substance: FLUCONAZOLE
     Indication: Candida infection
     Dosage: UNK, DAILY
     Route: 065
  80. FLUCONAZOLE [Suspect]
     Active Substance: FLUCONAZOLE
     Indication: Candida infection
     Dosage: UNK, DAILY
     Route: 065
  81. FLUCONAZOLE [Suspect]
     Active Substance: FLUCONAZOLE
     Dosage: 1 DAILY
     Route: 065
  82. FLUCONAZOLE [Suspect]
     Active Substance: FLUCONAZOLE
     Dosage: 1 DAILY
     Route: 065
  83. FLUCONAZOLE [Suspect]
     Active Substance: FLUCONAZOLE
     Dosage: UNK
     Route: 065
  84. FLUCONAZOLE [Suspect]
     Active Substance: FLUCONAZOLE
     Dosage: UNK
     Route: 065
  85. FLUCONAZOLE [Suspect]
     Active Substance: FLUCONAZOLE
     Dosage: UNK
     Route: 065
  86. FLUCONAZOLE [Suspect]
     Active Substance: FLUCONAZOLE
     Dosage: UNK
     Route: 065
  87. FLUCONAZOLE [Suspect]
     Active Substance: FLUCONAZOLE
     Dosage: 1 DAILY
  88. FLUCONAZOLE [Suspect]
     Active Substance: FLUCONAZOLE
     Dosage: UNK
  89. FLUCONAZOLE [Suspect]
     Active Substance: FLUCONAZOLE
     Dosage: UNK
  90. FLUCONAZOLE [Suspect]
     Active Substance: FLUCONAZOLE
     Dosage: UNK
  91. FLUCONAZOLE [Suspect]
     Active Substance: FLUCONAZOLE
     Dosage: UNK
  92. FLUCONAZOLE [Suspect]
     Active Substance: FLUCONAZOLE
     Dosage: UNK, QD
  93. ATEZOLIZUMAB [Suspect]
     Active Substance: ATEZOLIZUMAB
     Indication: Non-small cell lung cancer
     Dosage: 1200 MG, Q3W (MOST RECENT DOSE OF ATEZOLIZUMAB PRIOR TO ADVERSE EVENT (NAUSEA) ONSET ON 19/AUG/2020)
     Route: 065
     Dates: start: 20200729
  94. ATEZOLIZUMAB [Suspect]
     Active Substance: ATEZOLIZUMAB
     Indication: Small cell lung cancer
     Dosage: 1200 MG, TIW
     Route: 065
     Dates: start: 20200819
  95. ATEZOLIZUMAB [Suspect]
     Active Substance: ATEZOLIZUMAB
     Indication: Transitional cell carcinoma
     Dosage: UNK
     Route: 065
  96. ATEZOLIZUMAB [Suspect]
     Active Substance: ATEZOLIZUMAB
     Indication: Small cell lung cancer extensive stage
  97. ATEZOLIZUMAB [Suspect]
     Active Substance: ATEZOLIZUMAB
     Indication: Small cell lung cancer extensive stage
  98. ATEZOLIZUMAB [Suspect]
     Active Substance: ATEZOLIZUMAB
     Indication: Transitional cell carcinoma
  99. LACTULOSE [Suspect]
     Active Substance: LACTULOSE
     Indication: Prophylaxis
     Dosage: UNKNOWN
     Route: 065
  100. LACTULOSE [Suspect]
     Active Substance: LACTULOSE
     Dosage: UNK, 0.5 DAY
     Route: 065
  101. LACTULOSE [Suspect]
     Active Substance: LACTULOSE
     Dosage: 0.5 UNK, DAILY
     Route: 065
  102. LACTULOSE [Suspect]
     Active Substance: LACTULOSE
     Dosage: UNK
     Route: 065
  103. LACTULOSE [Suspect]
     Active Substance: LACTULOSE
     Dosage: 0.5 DAILY
     Route: 065
  104. LACTULOSE [Suspect]
     Active Substance: LACTULOSE
     Dosage: UNK, Q12H
     Route: 065
  105. LACTULOSE [Suspect]
     Active Substance: LACTULOSE
     Dosage: 0.5 DAILY
     Route: 065
  106. LACTULOSE [Suspect]
     Active Substance: LACTULOSE
     Dosage: UNK, Q12H
     Route: 065
  107. LACTULOSE [Suspect]
     Active Substance: LACTULOSE
     Dosage: 0.5 DAILY
     Route: 065
  108. LACTULOSE [Suspect]
     Active Substance: LACTULOSE
     Dosage: UNK, Q12H
     Route: 065
  109. LACTULOSE [Suspect]
     Active Substance: LACTULOSE
     Dosage: UNK
     Route: 065
  110. LACTULOSE [Suspect]
     Active Substance: LACTULOSE
     Dosage: UNK, BID (0.5 DAY)
     Route: 065
  111. LACTULOSE [Suspect]
     Active Substance: LACTULOSE
     Dosage: UNK
     Route: 065
  112. LACTULOSE [Suspect]
     Active Substance: LACTULOSE
     Dosage: UNK, QD
     Route: 065
  113. LACTULOSE [Suspect]
     Active Substance: LACTULOSE
     Dosage: UNK, Q12H
     Route: 065
  114. LACTULOSE [Suspect]
     Active Substance: LACTULOSE
     Dosage: UNK, QD (0.5 DAY)
     Route: 065
  115. ACETAMINOPHEN\CODEINE PHOSPHATE [Suspect]
     Active Substance: ACETAMINOPHEN\CODEINE PHOSPHATE
     Indication: Pain
     Dosage: UNK
     Route: 065
  116. ACETAMINOPHEN\CODEINE PHOSPHATE [Suspect]
     Active Substance: ACETAMINOPHEN\CODEINE PHOSPHATE
     Dosage: UNK, 0.5 DAY
     Route: 065
  117. ACETAMINOPHEN\CODEINE PHOSPHATE [Suspect]
     Active Substance: ACETAMINOPHEN\CODEINE PHOSPHATE
     Dosage: 0.5 UNK, DAILY
     Route: 065
  118. ACETAMINOPHEN\CODEINE PHOSPHATE [Suspect]
     Active Substance: ACETAMINOPHEN\CODEINE PHOSPHATE
     Dosage: UNK
     Route: 065
  119. VENLAFAXINE [Suspect]
     Active Substance: VENLAFAXINE HYDROCHLORIDE
     Indication: Depression
     Dosage: UNK
     Route: 065
  120. VENLAFAXINE [Suspect]
     Active Substance: VENLAFAXINE HYDROCHLORIDE
     Dosage: UNK (0.5 DAY)
     Route: 065
     Dates: start: 20200820
  121. VENLAFAXINE [Suspect]
     Active Substance: VENLAFAXINE HYDROCHLORIDE
     Dosage: UNK
     Route: 065
  122. VENLAFAXINE [Suspect]
     Active Substance: VENLAFAXINE HYDROCHLORIDE
     Dosage: 1 DAILY
     Route: 065
  123. VENLAFAXINE [Suspect]
     Active Substance: VENLAFAXINE HYDROCHLORIDE
     Dosage: 1 DAILY
     Route: 065
  124. VENLAFAXINE [Suspect]
     Active Substance: VENLAFAXINE HYDROCHLORIDE
     Dosage: UNK
     Route: 065
  125. VENLAFAXINE [Suspect]
     Active Substance: VENLAFAXINE HYDROCHLORIDE
     Dosage: UNK
     Route: 065
  126. VENLAFAXINE [Suspect]
     Active Substance: VENLAFAXINE HYDROCHLORIDE
     Dosage: 1 DAILY
     Route: 065
  127. VENLAFAXINE [Suspect]
     Active Substance: VENLAFAXINE HYDROCHLORIDE
     Dosage: UNK
     Route: 065
  128. VENLAFAXINE [Suspect]
     Active Substance: VENLAFAXINE HYDROCHLORIDE
     Dosage: UNK
     Route: 065
  129. VENLAFAXINE [Suspect]
     Active Substance: VENLAFAXINE HYDROCHLORIDE
     Dosage: UNK UNK, QD
     Route: 065
  130. ALBUTEROL [Suspect]
     Active Substance: ALBUTEROL
     Indication: Prophylaxis
     Dosage: UNK
     Route: 065
  131. ALBUTEROL [Suspect]
     Active Substance: ALBUTEROL
     Dosage: UNK
     Route: 065
  132. ALBUTEROL [Suspect]
     Active Substance: ALBUTEROL
     Dosage: UNK
     Route: 065
  133. ALBUTEROL [Suspect]
     Active Substance: ALBUTEROL
     Dosage: UNK
     Route: 065
  134. ALBUTEROL [Suspect]
     Active Substance: ALBUTEROL
     Dosage: UNK
     Route: 065
  135. ALBUTEROL [Suspect]
     Active Substance: ALBUTEROL
     Dosage: UNK
     Route: 065
  136. ALBUTEROL [Suspect]
     Active Substance: ALBUTEROL
     Dosage: UNK
     Route: 065
  137. ALBUTEROL [Suspect]
     Active Substance: ALBUTEROL
     Dosage: UNK
     Route: 065
  138. ALBUTEROL [Suspect]
     Active Substance: ALBUTEROL
     Dosage: UNK
     Route: 065
  139. ALBUTEROL [Suspect]
     Active Substance: ALBUTEROL
     Dosage: UNK
     Route: 065
  140. ZOPICLONE [Suspect]
     Active Substance: ZOPICLONE
     Indication: Prophylaxis
     Dosage: 1 DAILY
     Route: 065
     Dates: start: 20200731
  141. ZOPICLONE [Suspect]
     Active Substance: ZOPICLONE
     Dosage: 1 MG, QD
     Route: 065
     Dates: start: 20200731
  142. DEXAMETHASONE [Suspect]
     Active Substance: DEXAMETHASONE
     Indication: Dysphagia
     Dosage: UNK, QD
     Dates: start: 20200826
  143. DEXAMETHASONE [Suspect]
     Active Substance: DEXAMETHASONE
     Indication: Prophylaxis
     Dosage: UNK
     Route: 065
  144. DEXAMETHASONE [Suspect]
     Active Substance: DEXAMETHASONE
     Dosage: UNK
     Route: 065
  145. DEXAMETHASONE [Suspect]
     Active Substance: DEXAMETHASONE
     Dosage: UNK
     Route: 065
  146. DEXAMETHASONE [Suspect]
     Active Substance: DEXAMETHASONE
     Dosage: UNK
     Route: 065
  147. DEXAMETHASONE [Suspect]
     Active Substance: DEXAMETHASONE
     Dosage: UNK
     Route: 065
  148. DEXAMETHASONE [Suspect]
     Active Substance: DEXAMETHASONE
     Dosage: UNK
     Route: 065
  149. DEXAMETHASONE [Suspect]
     Active Substance: DEXAMETHASONE
     Dosage: UNK
     Route: 065
  150. ETOPOSIDE [Suspect]
     Active Substance: ETOPOSIDE
     Indication: Non-small cell lung cancer
     Dosage: 148 MG
     Route: 065
     Dates: start: 20200729
  151. ETOPOSIDE [Suspect]
     Active Substance: ETOPOSIDE
     Indication: Small cell lung cancer extensive stage
     Dosage: 600 MG, QD
     Route: 065
     Dates: start: 20200730
  152. ETOPOSIDE [Suspect]
     Active Substance: ETOPOSIDE
     Indication: Small cell lung cancer extensive stage
  153. ACETAMINOPHEN\CODEINE PHOSPHATE [Suspect]
     Active Substance: ACETAMINOPHEN\CODEINE PHOSPHATE
     Indication: Pain
     Dosage: 0.5 UNK, DAILY
     Route: 065
  154. ACETAMINOPHEN\CODEINE PHOSPHATE [Suspect]
     Active Substance: ACETAMINOPHEN\CODEINE PHOSPHATE
     Dosage: 0.5 DAILY
     Route: 065
  155. ACETAMINOPHEN\CODEINE PHOSPHATE [Suspect]
     Active Substance: ACETAMINOPHEN\CODEINE PHOSPHATE
     Dosage: UNK
     Route: 065
  156. ACETAMINOPHEN\CODEINE PHOSPHATE [Suspect]
     Active Substance: ACETAMINOPHEN\CODEINE PHOSPHATE
     Dosage: UNK
     Route: 065
  157. ACETAMINOPHEN\CODEINE PHOSPHATE [Suspect]
     Active Substance: ACETAMINOPHEN\CODEINE PHOSPHATE
     Dosage: UNK
     Route: 065
  158. ACETAMINOPHEN\CODEINE PHOSPHATE [Suspect]
     Active Substance: ACETAMINOPHEN\CODEINE PHOSPHATE
     Dosage: 0.5 DAILY
     Route: 065
  159. ACETAMINOPHEN\CODEINE PHOSPHATE [Suspect]
     Active Substance: ACETAMINOPHEN\CODEINE PHOSPHATE
     Dosage: UNK
     Route: 065
  160. ACETAMINOPHEN\CODEINE PHOSPHATE [Suspect]
     Active Substance: ACETAMINOPHEN\CODEINE PHOSPHATE
     Dosage: UNK
     Route: 065
  161. ACETAMINOPHEN\CODEINE PHOSPHATE [Suspect]
     Active Substance: ACETAMINOPHEN\CODEINE PHOSPHATE
     Dosage: UNK
     Route: 065
  162. ACETAMINOPHEN\CODEINE PHOSPHATE [Suspect]
     Active Substance: ACETAMINOPHEN\CODEINE PHOSPHATE
     Dosage: 0.5 MG, QD
     Route: 065
  163. CLOPIDOGREL BISULFATE [Suspect]
     Active Substance: CLOPIDOGREL BISULFATE
     Indication: Hypertension
     Dosage: UNK
     Route: 065
  164. CLOPIDOGREL BISULFATE [Suspect]
     Active Substance: CLOPIDOGREL BISULFATE
     Dosage: UNK
     Route: 065
  165. SPIRIVA [Suspect]
     Active Substance: TIOTROPIUM BROMIDE MONOHYDRATE
     Indication: Chronic obstructive pulmonary disease
     Dosage: 1 DOSAGE FORM, QD
     Route: 065
  166. SPIRIVA [Suspect]
     Active Substance: TIOTROPIUM BROMIDE MONOHYDRATE
     Dosage: UNK, QD
     Route: 065
  167. SPIRIVA [Suspect]
     Active Substance: TIOTROPIUM BROMIDE MONOHYDRATE
     Dosage: UNK
     Route: 065
  168. ZOLMITRIPTAN [Suspect]
     Active Substance: ZOLMITRIPTAN
     Indication: Pain
     Dosage: UNK UNK, QD
     Route: 065
  169. ZOLMITRIPTAN [Suspect]
     Active Substance: ZOLMITRIPTAN
     Dosage: UNK UNK, QD
  170. SANDO K                            /00209301/ [Concomitant]
     Indication: Prophylaxis
     Dosage: UNK
     Route: 065
     Dates: start: 20200828, end: 20200901
  171. SANDO K                            /00209301/ [Concomitant]
     Dosage: UNK
     Route: 065
     Dates: start: 20200819
  172. SANDO K                            /00209301/ [Concomitant]
     Dosage: UNK, 0.5 DAY
     Route: 065
  173. SANDO K                            /00209301/ [Concomitant]
     Dosage: UNK, 0.5 DAY
     Route: 065
  174. PHOSPHORIC ACID [Concomitant]
     Active Substance: PHOSPHORIC ACID
     Indication: Product used for unknown indication
     Dosage: UNK
     Route: 065
  175. PHOSPHORIC ACID [Concomitant]
     Active Substance: PHOSPHORIC ACID
     Indication: Product used for unknown indication
     Dosage: UNK
     Route: 065
  176. PHOSPHORIC ACID [Concomitant]
     Active Substance: PHOSPHORIC ACID
     Dosage: UNK
  177. PHOSPHORIC ACID [Concomitant]
     Active Substance: PHOSPHORIC ACID
     Dosage: UNK UNK, QID
     Dates: start: 20200825, end: 20200825
  178. POTASSIUM BICARBONATE\POTASSIUM CHLORIDE [Concomitant]
     Active Substance: POTASSIUM BICARBONATE\POTASSIUM CHLORIDE
     Indication: Prophylaxis
     Dosage: UNK
     Route: 065
     Dates: start: 20200828, end: 20200901
  179. POTASSIUM BICARBONATE\POTASSIUM CHLORIDE [Concomitant]
     Active Substance: POTASSIUM BICARBONATE\POTASSIUM CHLORIDE
     Dosage: UNK
     Route: 065
     Dates: start: 20200819
  180. ATEZOLIZUMAB [Concomitant]
     Active Substance: ATEZOLIZUMAB
     Indication: Product used for unknown indication
     Dosage: UNK
     Route: 041
  181. ATEZOLIZUMAB [Concomitant]
     Active Substance: ATEZOLIZUMAB
     Dosage: UNK
     Route: 041
  182. ATEZOLIZUMAB [Concomitant]
     Active Substance: ATEZOLIZUMAB
     Dosage: UNK
  183. ONDANSETRON [Concomitant]
     Active Substance: ONDANSETRON
     Indication: Product used for unknown indication
     Dosage: 8 MG
     Dates: start: 20200729, end: 20200729
  184. MAGNESIUM [Concomitant]
     Active Substance: MAGNESIUM
     Indication: Product used for unknown indication
     Dosage: UNK
     Dates: start: 20200819, end: 20200819
  185. MAGNESIUM [Concomitant]
     Active Substance: MAGNESIUM
     Indication: Product used for unknown indication
  186. METOCLOPRAMIDE [Concomitant]
     Active Substance: METOCLOPRAMIDE
     Indication: Vomiting
     Dosage: 1 DOSAGE FORM, QID
     Dates: start: 20200819, end: 20200819
  187. POTASSIUM CHLORIDE [Concomitant]
     Active Substance: POTASSIUM CHLORIDE
     Indication: Prophylaxis
     Dosage: UNK
     Dates: start: 20200828
  188. POTASSIUM CHLORIDE [Concomitant]
     Active Substance: POTASSIUM CHLORIDE
     Dosage: UNK UNK, BID
     Route: 065
     Dates: start: 20200819

REACTIONS (28)
  - Death [Fatal]
  - Product use in unapproved indication [Fatal]
  - Balance disorder [Fatal]
  - Gait disturbance [Unknown]
  - Decreased appetite [Recovered/Resolved]
  - Nervous system disorder [Not Recovered/Not Resolved]
  - Asthenia [Unknown]
  - Neutrophil count decreased [Recovered/Resolved]
  - Hypomagnesaemia [Fatal]
  - Dysphagia [Not Recovered/Not Resolved]
  - Nausea [Recovered/Resolved]
  - Neutropenic sepsis [Not Recovered/Not Resolved]
  - Hypokalaemia [Recovered/Resolved]
  - Mucosal inflammation [Not Recovered/Not Resolved]
  - Depression [Not Recovered/Not Resolved]
  - Productive cough [Not Recovered/Not Resolved]
  - Diarrhoea [Recovered/Resolved]
  - Anaemia [Recovered/Resolved]
  - Dehydration [Not Recovered/Not Resolved]
  - Skin candida [Not Recovered/Not Resolved]
  - Dyspnoea [Not Recovered/Not Resolved]
  - Mouth ulceration [Recovered/Resolved]
  - Constipation [Not Recovered/Not Resolved]
  - Headache [Not Recovered/Not Resolved]
  - Vomiting [Not Recovered/Not Resolved]
  - Candida infection [Not Recovered/Not Resolved]
  - Anaemia [Unknown]
  - Hypomagnesaemia [Recovered/Resolved]

NARRATIVE: CASE EVENT DATE: 20200730
